FAERS Safety Report 7088641-7 (Version None)
Quarter: 2010Q4

REPORT INFORMATION
  Report Type: 
  Country: None (occurrence: None)
  Receive Date: 20101029
  Receipt Date: 20101019
  Transmission Date: 20110411
  Serious: Yes (Other)
  Sender: FDA-Public Use
  Company Number: JHP201000328

PATIENT
  Age: 1 Day
  Sex: Male

DRUGS (1)
  1. PITOCIN [Suspect]
     Indication: LABOUR INDUCTION
     Dosage: 3 VIALS, TRANSPLACENTAL
     Route: 064

REACTIONS (3)
  - AUTISM [None]
  - CONVULSION [None]
  - MATERNAL DRUGS AFFECTING FOETUS [None]
